FAERS Safety Report 9169210 (Version 1)
Quarter: 2013Q1

REPORT INFORMATION
  Report Type: Spontaneous
  Country: FR (occurrence: FR)
  Receive Date: 20130318
  Receipt Date: 20130318
  Transmission Date: 20140127
  Serious: Yes (Hospitalization)
  Sender: FDA-Public Use
  Company Number: FR-ROCHE-1203083

PATIENT
  Age: 78 Year
  Sex: Female

DRUGS (12)
  1. LUCENTIS [Suspect]
     Indication: AGE-RELATED MACULAR DEGENERATION
     Route: 050
     Dates: start: 20100728
  2. KARDEGIC [Concomitant]
     Route: 065
  3. LASILIX [Concomitant]
     Route: 065
  4. CARDENSIEL [Concomitant]
     Route: 065
  5. LEVOTHYROX [Concomitant]
     Route: 065
  6. ACTONEL [Concomitant]
     Route: 065
  7. DAFLON (FRANCE) [Concomitant]
  8. PROCORALAN [Concomitant]
     Route: 065
  9. CYMBALTA [Concomitant]
     Route: 065
  10. PREVISCAN (FRANCE) [Concomitant]
     Route: 065
  11. PLAQUENIL [Concomitant]
     Indication: RHEUMATOID ARTHRITIS
     Route: 065
  12. CRESTOR [Concomitant]
     Route: 065

REACTIONS (1)
  - Impaired healing [Unknown]
